FAERS Safety Report 5873366-3 (Version None)
Quarter: 2008Q3

REPORT INFORMATION
  Report Type: 
  Country: None (occurrence: None)
  Receive Date: 20080829
  Receipt Date: 20070619
  Transmission Date: 20090109
  Serious: Yes (Death, Hospitalization)
  Sender: FDA-Public Use
  Company Number: 2007-00564FE

PATIENT
  Age: 39 Year
  Sex: Female

DRUGS (1)
  1. MENOTROPHIN () (MENOTROPHIN) [Suspect]
     Indication: INFERTILITY
     Dosage: 75 IU SC
     Route: 058
     Dates: start: 20051121, end: 20051123

REACTIONS (2)
  - MULTI-ORGAN FAILURE [None]
  - OVARIAN HYPERSTIMULATION SYNDROME [None]
